FAERS Safety Report 11095448 (Version 2)
Quarter: 2015Q2

REPORT INFORMATION
  Report Type: Report from Study
  Country: US (occurrence: US)
  Receive Date: 20150506
  Receipt Date: 20150604
  Transmission Date: 20150821
  Serious: Yes (Life-Threatening, Hospitalization, Disabling)
  Sender: FDA-Public Use
  Company Number: US-ACTELION-A-NJ2015-117098

PATIENT
  Age: 33 Year
  Sex: Female

DRUGS (3)
  1. VELETRI [Suspect]
     Active Substance: EPOPROSTENOL
     Indication: PULMONARY ARTERIAL HYPERTENSION
     Dosage: 20 NG/KG, PER MIN
     Route: 042
     Dates: start: 20150214
  2. REVATIO [Concomitant]
     Active Substance: SILDENAFIL CITRATE
  3. WARFARIN [Concomitant]
     Active Substance: WARFARIN

REACTIONS (14)
  - Nausea [Unknown]
  - Drug dose omission [Unknown]
  - Ventricular failure [Recovering/Resolving]
  - Memory impairment [Unknown]
  - Endotracheal intubation [Unknown]
  - Oedema [Unknown]
  - Flushing [Unknown]
  - Catheter site pruritus [Unknown]
  - Limb discomfort [Unknown]
  - Diarrhoea [Unknown]
  - Pain in jaw [Unknown]
  - Pain [Unknown]
  - Headache [Unknown]
  - Asthenia [Unknown]
